FAERS Safety Report 7716831-6 (Version None)
Quarter: 2011Q3

REPORT INFORMATION
  Report Type: 
  Country: None (occurrence: None)
  Receive Date: 20110829
  Receipt Date: 20110822
  Transmission Date: 20111222
  Serious: Yes (Other)
  Sender: FDA-Public Use
  Company Number: PHHY2011GB75036

PATIENT
  Age: 14 Month
  Sex: Male
  Weight: 6.5 kg

DRUGS (1)
  1. TACROLIMUS [Suspect]

REACTIONS (14)
  - CARDIAC FAILURE [None]
  - SEPSIS [None]
  - CEREBRAL DISORDER [None]
  - RESPIRATORY FAILURE [None]
  - BRAIN OEDEMA [None]
  - PUPILLARY REFLEX IMPAIRED [None]
  - BRADYCARDIA [None]
  - MYDRIASIS [None]
  - RENAL FAILURE [None]
  - HYPERTENSION [None]
  - DRUG LEVEL INCREASED [None]
  - FONTANELLE BULGING [None]
  - INTRACRANIAL PRESSURE INCREASED [None]
  - PUPIL FIXED [None]
